FAERS Safety Report 14008349 (Version 1)
Quarter: 2017Q3

REPORT INFORMATION
  Report Type: Spontaneous
  Country: US (occurrence: US)
  Receive Date: 20170925
  Receipt Date: 20170925
  Transmission Date: 20171128
  Serious: Yes (Other)
  Sender: FDA-Public Use
  Company Number: None

PATIENT
  Age: 5 Year
  Sex: Female
  Weight: 20.2 kg

DRUGS (1)
  1. RISPERIDONE SOLUTION [Suspect]
     Active Substance: RISPERIDONE
     Indication: AUTISM SPECTRUM DISORDER
     Route: 048
     Dates: start: 20170330, end: 20170406

REACTIONS (1)
  - Seizure [None]

NARRATIVE: CASE EVENT DATE: 20170406
